FAERS Safety Report 7113747-3 (Version None)
Quarter: 2010Q4

REPORT INFORMATION
  Report Type: 
  Country: None (occurrence: None)
  Receive Date: 20101119
  Receipt Date: 20101105
  Transmission Date: 20110411
  Serious: Yes (Other)
  Sender: FDA-Public Use
  Company Number: US-PFIZER INC-2010142773

PATIENT

DRUGS (1)
  1. TORISEL [Suspect]
     Route: 042

REACTIONS (1)
  - PLEURAL EFFUSION [None]
